FAERS Safety Report 8089193-5 (Version None)
Quarter: 2012Q1

REPORT INFORMATION
  Report Type: 
  Country: None (occurrence: None)
  Receive Date: 20120128
  Receipt Date: 20110616
  Transmission Date: 20120608
  Serious: No
  Sender: FDA-Public Use
  Company Number: US-ABBOTT-11P-163-0732936-00

PATIENT
  Age: 42 Year
  Sex: Male

DRUGS (3)
  1. PERCOCET [Concomitant]
     Indication: PAIN
  2. IBUPROFEN [Concomitant]
     Indication: PAIN
  3. HUMIRA [Suspect]
     Indication: CROHN'S DISEASE
     Dates: start: 20101122, end: 20110612

REACTIONS (1)
  - DRUG INEFFECTIVE [None]
